FAERS Safety Report 14692164 (Version 1)
Quarter: 2018Q1

REPORT INFORMATION
  Report Type: Spontaneous
  Country: FR (occurrence: FR)
  Receive Date: 20180329
  Receipt Date: 20180329
  Transmission Date: 20180509
  Serious: Yes (Other)
  Sender: FDA-Public Use
  Company Number: FR-MERCK KGAA-2044734

PATIENT
  Age: 53 Year
  Sex: Female

DRUGS (1)
  1. NOVOTHYROX [Suspect]
     Active Substance: LEVOTHYROXINE SODIUM
     Indication: PRODUCT USED FOR UNKNOWN INDICATION
     Dates: start: 201706

REACTIONS (25)
  - Deafness [None]
  - Malaise [None]
  - Amnesia [None]
  - Chest pain [None]
  - Muscle spasms [None]
  - Tachycardia [None]
  - Depression [None]
  - Arthralgia [None]
  - Tinnitus [None]
  - Pain in jaw [None]
  - Vision blurred [None]
  - Blood thyroid stimulating hormone increased [None]
  - Insomnia [None]
  - Pain in extremity [None]
  - Anxiety [None]
  - Fatigue [None]
  - Transient ischaemic attack [None]
  - Dizziness [None]
  - Anti-thyroid antibody positive [None]
  - Headache [None]
  - Myalgia [None]
  - Peripheral swelling [None]
  - Joint swelling [None]
  - Living alone [None]
  - Social avoidant behaviour [None]

NARRATIVE: CASE EVENT DATE: 20170828
